FAERS Safety Report 11234834 (Version 1)
Quarter: 2015Q3

REPORT INFORMATION
  Report Type: Spontaneous
  Country: US (occurrence: US)
  Receive Date: 20150702
  Receipt Date: 20150702
  Transmission Date: 20151125
  Serious: Yes (Hospitalization)
  Sender: FDA-Public Use
  Company Number: US-ELI_LILLY_AND_COMPANY-US201506009777

PATIENT
  Sex: Male

DRUGS (7)
  1. HUMULIN N [Suspect]
     Active Substance: INSULIN HUMAN
     Indication: TYPE 2 DIABETES MELLITUS
     Dosage: UNK
     Route: 065
     Dates: start: 2004
  2. HUMALOG MIX75/25 [Suspect]
     Active Substance: INSULIN LISPRO
     Indication: TYPE 2 DIABETES MELLITUS
     Dosage: 45 U, BID
     Route: 065
  3. FUROSEMIDE. [Concomitant]
     Active Substance: FUROSEMIDE
  4. LANTUS [Concomitant]
     Active Substance: INSULIN GLARGINE
  5. GLIPIZIDE. [Concomitant]
     Active Substance: GLIPIZIDE
  6. HUMALOG MIX75/25 [Suspect]
     Active Substance: INSULIN LISPRO
     Dosage: 35 U, PRN
     Route: 065
  7. METFORMIN [Concomitant]
     Active Substance: METFORMIN HYDROCHLORIDE

REACTIONS (5)
  - Bronchitis [Recovered/Resolved]
  - Body temperature increased [Recovered/Resolved]
  - Blood glucose increased [Unknown]
  - Incorrect product storage [Unknown]
  - Urinary tract infection [Recovered/Resolved]
